FAERS Safety Report 9548327 (Version 1)
Quarter: 2013Q3

REPORT INFORMATION
  Report Type: Spontaneous
  Country: CA (occurrence: CA)
  Receive Date: 20130924
  Receipt Date: 20130924
  Transmission Date: 20140515
  Serious: Yes (Hospitalization, Other)
  Sender: FDA-Public Use
  Company Number: CA-ROCHE-1274224

PATIENT
  Age: 41 Year
  Sex: Female
  Weight: 45 kg

DRUGS (28)
  1. CEFTRIAXONE [Suspect]
     Indication: PRODUCT USED FOR UNKNOWN INDICATION
     Dosage: POWDER FOR SOLUTION INTRAMUSCULAR
     Route: 042
  2. PARACETAMOL [Suspect]
     Indication: PRODUCT USED FOR UNKNOWN INDICATION
     Route: 048
  3. PARACETAMOL [Suspect]
     Route: 048
  4. PARACETAMOL [Suspect]
     Dosage: FREQUENCY: AS REQUIRED
     Route: 065
  5. GLOBULIN, IMMUNE [Suspect]
     Indication: PRODUCT USED FOR UNKNOWN INDICATION
     Route: 042
  6. GLOBULIN, IMMUNE [Suspect]
     Route: 042
  7. GLOBULIN, IMMUNE [Suspect]
     Route: 042
  8. GLOBULIN, IMMUNE [Suspect]
     Route: 042
  9. GLOBULIN, IMMUNE [Suspect]
     Route: 042
  10. GLOBULIN, IMMUNE [Suspect]
     Dosage: SOLUTION INTRAVENOUS
     Route: 042
  11. GLOBULIN, IMMUNE [Suspect]
     Route: 042
  12. RANITIDINE [Suspect]
     Indication: PRODUCT USED FOR UNKNOWN INDICATION
     Route: 065
  13. RANITIDINE [Suspect]
     Route: 065
  14. CHLORHEXIDINE [Concomitant]
     Route: 065
  15. COTAZYM [Concomitant]
     Route: 065
  16. DIMENHYDRINATE [Concomitant]
     Route: 065
  17. DOCUSATE SODIUM [Concomitant]
     Route: 065
  18. FRAGMIN [Concomitant]
     Route: 065
  19. LEVOFLOXACIN [Concomitant]
     Route: 065
  20. METOCLOPRAMIDE [Concomitant]
     Route: 065
  21. MIDAZOLAM ROCHE UNSPEC. [Concomitant]
     Route: 030
  22. NOREPINEPHRINE [Concomitant]
     Route: 065
  23. SALBUTAMOL [Concomitant]
     Route: 065
  24. SENNOSIDE [Concomitant]
     Route: 065
  25. SODIUM BICARBONATE [Concomitant]
     Route: 065
  26. VASOPRESSIN [Concomitant]
     Route: 065
  27. HYPROMELLOSE [Concomitant]
     Route: 065
  28. PANCRELIPASE [Concomitant]
     Route: 065

REACTIONS (10)
  - Pleural infection bacterial [Unknown]
  - Empyema [Not Recovered/Not Resolved]
  - Beta haemolytic streptococcal infection [Recovered/Resolved]
  - Blood bilirubin increased [Recovered/Resolved]
  - Haemoglobin decreased [Recovered/Resolved]
  - Haemolysis [Recovered/Resolved]
  - Jaundice [Recovered/Resolved]
  - Red blood cell agglutination [Recovered/Resolved]
  - Red blood cell spherocytes present [Recovered/Resolved]
  - Reticulocyte count increased [Recovered/Resolved]
